FAERS Safety Report 5438748-2 (Version None)
Quarter: 2007Q3

REPORT INFORMATION
  Report Type: 
  Country: None (occurrence: None)
  Receive Date: 20070831
  Receipt Date: 20070823
  Transmission Date: 20080115
  Serious: No
  Sender: FDA-Public Use
  Company Number: A0674100A

PATIENT
  Sex: Female

DRUGS (3)
  1. ALLI [Suspect]
     Dates: start: 20070708
  2. LEXAPRO [Concomitant]
  3. WELLBUTRIN [Concomitant]

REACTIONS (6)
  - ABDOMINAL DISTENSION [None]
  - ABDOMINAL PAIN UPPER [None]
  - FRUSTRATION [None]
  - GASTROINTESTINAL DISORDER [None]
  - POLYMENORRHOEA [None]
  - WEIGHT INCREASED [None]
